FAERS Safety Report 25136660 (Version 2)
Quarter: 2025Q2

REPORT INFORMATION
  Report Type: Spontaneous
  Country: US (occurrence: US)
  Receive Date: 20250328
  Receipt Date: 20250403
  Transmission Date: 20250717
  Serious: Yes (Hospitalization, Other)
  Sender: DR REDDYS
  Company Number: None

PATIENT
  Age: 65 Year
  Sex: Male

DRUGS (9)
  1. TACROLIMUS [Suspect]
     Active Substance: TACROLIMUS
     Indication: Immunosuppressant drug therapy
  2. ALBENDAZOLE [Suspect]
     Active Substance: ALBENDAZOLE
     Indication: Strongyloidiasis
     Route: 048
  3. MYCOPHENOLIC ACID [Suspect]
     Active Substance: MYCOPHENOLIC ACID
     Indication: Immunosuppressant drug therapy
  4. PREDNISONE [Suspect]
     Active Substance: PREDNISONE
     Indication: Immunosuppressant drug therapy
  5. CYCLOSPORINE [Concomitant]
     Active Substance: CYCLOSPORINE
     Indication: Immunosuppressant drug therapy
  6. VANCOMYCIN [Concomitant]
     Active Substance: VANCOMYCIN
     Indication: Strongyloidiasis
  7. PIPERACILLIN SODIUM\TAZOBACTAM SODIUM [Concomitant]
     Active Substance: PIPERACILLIN SODIUM\TAZOBACTAM SODIUM
     Indication: Strongyloidiasis
  8. IVERMECTIN [Concomitant]
     Active Substance: IVERMECTIN
     Indication: Strongyloidiasis
     Route: 048
  9. IVERMECTIN [Concomitant]
     Active Substance: IVERMECTIN
     Route: 054

REACTIONS (8)
  - Strongyloidiasis [Recovered/Resolved]
  - Drug ineffective for unapproved indication [Unknown]
  - Pericardial effusion [Unknown]
  - Mental status changes [Unknown]
  - Lung infiltration [Unknown]
  - Acute respiratory failure [Unknown]
  - Ileus [Unknown]
  - Leukocytosis [Unknown]
